FAERS Safety Report 10941958 (Version 2)
Quarter: 2015Q2

REPORT INFORMATION
  Report Type: Spontaneous
  Country: US (occurrence: US)
  Receive Date: 20150322
  Receipt Date: 20150529
  Transmission Date: 20150821
  Serious: No
  Sender: FDA-Public Use
  Company Number: US-JNJFOC-20140720395

PATIENT
  Age: 64 Year
  Sex: Male
  Weight: 104.33 kg

DRUGS (5)
  1. GLYBURIDE. [Concomitant]
     Active Substance: GLYBURIDE
     Indication: TYPE 2 DIABETES MELLITUS
     Dosage: 10-1000MG
     Route: 048
     Dates: start: 1999
  2. GLYBURIDE METFORMIN [Concomitant]
     Dosage: DOSE - 5/500
     Route: 048
  3. INVOKANA [Suspect]
     Active Substance: CANAGLIFLOZIN
     Indication: TYPE 2 DIABETES MELLITUS
     Route: 048
     Dates: start: 20140624, end: 201407
  4. FISH OIL [Concomitant]
     Active Substance: FISH OIL
     Route: 048
  5. HYDROCHLOROTHIAZIDE. [Concomitant]
     Active Substance: HYDROCHLOROTHIAZIDE
     Indication: BLOOD PRESSURE
     Route: 048

REACTIONS (6)
  - Balanoposthitis [Unknown]
  - Muscle spasms [Recovering/Resolving]
  - Pollakiuria [Recovering/Resolving]
  - Dysuria [Unknown]
  - Dizziness [Unknown]
  - Musculoskeletal pain [Recovering/Resolving]

NARRATIVE: CASE EVENT DATE: 201406
